FAERS Safety Report 9337504 (Version 2)
Quarter: 2013Q3

REPORT INFORMATION
  Report Type: Spontaneous
  Country: JP (occurrence: JP)
  Receive Date: 20130607
  Receipt Date: 20130701
  Transmission Date: 20140515
  Serious: Yes (Hospitalization, Other)
  Sender: FDA-Public Use
  Company Number: JP-ELI_LILLY_AND_COMPANY-JP201306000017

PATIENT
  Age: 61 Year
  Sex: Female

DRUGS (2)
  1. GEMCITABINE HYDROCHLORIDE [Suspect]
     Indication: LARGE CELL LUNG CANCER STAGE IV
     Dosage: 700 MG/M2, DAY1, 8
     Route: 042
     Dates: start: 201010, end: 201109
  2. BEVACIZUMAB [Concomitant]
     Indication: LARGE CELL LUNG CANCER STAGE IV
     Dosage: 500 MG/M2, DAY1
     Dates: start: 201010, end: 201109

REACTIONS (1)
  - Thrombotic thrombocytopenic purpura [Recovered/Resolved]
